FAERS Safety Report 8343205-X (Version None)
Quarter: 2012Q1

REPORT INFORMATION
  Report Type: 
  Country: None (occurrence: None)
  Receive Date: 20120330
  Receipt Date: 20110628
  Transmission Date: 20120608
  Serious: Yes (Other)
  Sender: FDA-Public Use
  Company Number: PHHY2011US54493

PATIENT
  Age: 81 Year
  Sex: Female

DRUGS (10)
  1. RITALIN [Concomitant]
  2. LEVOTHYROXINE SODIUM [Concomitant]
  3. REMERON [Concomitant]
  4. CELEXA [Concomitant]
  5. LEVETIRACETAM [Concomitant]
  6. RIVASTIGMINE [Suspect]
     Indication: COGNITIVE DISORDER
     Dosage: 9.5 MG, PATCH DAILY, TRANSDERMAL, 4.6 MG, PATCH DAILY, TRANSDERMAL
     Route: 062
     Dates: start: 20110617
  7. AMIODARONE HCL [Concomitant]
  8. LASIX [Concomitant]
  9. BUSPIRONE HCL [Concomitant]
  10. METHYLIN (METHYLPHENIDATE HYDROCHLORIDE) [Concomitant]

REACTIONS (1)
  - HYPOTENSION [None]
